FAERS Safety Report 8690889 (Version 2)
Quarter: 2013Q4

REPORT INFORMATION
  Report Type: Spontaneous
  Country: US (occurrence: US)
  Receive Date: 20120730
  Receipt Date: 20131101
  Transmission Date: 20140711
  Serious: No
  Sender: FDA-Public Use
  Company Number: US-009507513-1207USA006887

PATIENT
  Age: 76 Year
  Sex: Female

DRUGS (3)
  1. ZOCOR [Suspect]
     Dosage: UNK
     Route: 048
  2. PRILOSEC OTC [Concomitant]
  3. ASPIRIN [Concomitant]

REACTIONS (5)
  - Fall [Not Recovered/Not Resolved]
  - Rib fracture [Not Recovered/Not Resolved]
  - Skeletal injury [Not Recovered/Not Resolved]
  - Rash [Unknown]
  - Eye pruritus [Unknown]
